FAERS Safety Report 26151120 (Version 1)
Quarter: 2025Q4

REPORT INFORMATION
  Report Type: Spontaneous
  Country: US (occurrence: None)
  Receive Date: 20251211
  Receipt Date: 20251211
  Transmission Date: 20260117
  Serious: No
  Sender: FDA-CTU
  Company Number: None

PATIENT
  Age: 54 Year
  Sex: Male
  Weight: 90 kg

DRUGS (5)
  1. HUMIRA [Suspect]
     Active Substance: ADALIMUMAB
     Indication: Crohn^s disease
     Dosage: OTHER FREQUENCY : EVERY 14 DAYS;
     Route: 058
     Dates: start: 20250519
  2. METAMUCIL [Concomitant]
     Active Substance: PLANTAGO SEED
  3. HERBALS\TURMERIC [Concomitant]
     Active Substance: HERBALS\TURMERIC
  4. COD LIVER OIL CAPSULES [Concomitant]
  5. MENS DAILY MULTIVITAMIN [Concomitant]

REACTIONS (1)
  - Infrequent bowel movements [None]

NARRATIVE: CASE EVENT DATE: 20250630
